FAERS Safety Report 6369008-3 (Version None)
Quarter: 2009Q3

REPORT INFORMATION
  Report Type: 
  Country: None (occurrence: None)
  Receive Date: 20090922
  Receipt Date: 20090917
  Transmission Date: 20100115
  Serious: Yes (Life-Threatening, Hospitalization)
  Sender: FDA-Public Use
  Company Number: US-ELI_LILLY_AND_COMPANY-US200909004279

PATIENT
  Sex: Female
  Weight: 101.4 kg

DRUGS (21)
  1. BYETTA [Suspect]
     Indication: TYPE 2 DIABETES MELLITUS
     Dosage: 5 UG, 2/D
     Route: 058
     Dates: start: 20070101, end: 20070101
  2. BYETTA [Suspect]
     Dosage: 10 UG, 2/D
     Route: 058
     Dates: start: 20070101, end: 20070101
  3. BYETTA [Suspect]
     Dosage: 5 UG, 2/D
     Route: 058
     Dates: start: 20070101
  4. BYETTA [Suspect]
     Dosage: 5 UG, 2/D
     Route: 058
  5. BYETTA [Suspect]
     Dosage: 5 UG, 2/D
     Route: 058
  6. GLUCOPHAGE [Concomitant]
     Indication: TYPE 2 DIABETES MELLITUS
     Dosage: 1000 MG, EACH MORNING
  7. NEXIUM [Concomitant]
     Indication: GASTROOESOPHAGEAL REFLUX DISEASE
     Dosage: 40 MG, EACH EVENING
  8. SINGULAIR [Concomitant]
     Indication: CHRONIC OBSTRUCTIVE PULMONARY DISEASE
     Dosage: 10 MG, EACH EVENING
  9. PULMICORT-100 [Concomitant]
     Indication: CHRONIC OBSTRUCTIVE PULMONARY DISEASE
     Dosage: 2 D/F, DAILY (1/D)
     Route: 055
  10. ALBUTEROL [Concomitant]
     Indication: CHRONIC OBSTRUCTIVE PULMONARY DISEASE
  11. CRESTOR [Concomitant]
     Indication: BLOOD CHOLESTEROL INCREASED
     Dosage: 10 MG, UNK
  12. SYNTHROID [Concomitant]
     Indication: THYROID DISORDER
     Dosage: 0.1 MG, DAILY (1/D)
  13. NEURONTIN [Concomitant]
     Dosage: 300 MG, UNK
  14. PLAVIX [Concomitant]
     Dosage: 75 MG, DAILY (1/D)
  15. ASPIRIN [Concomitant]
     Indication: PROPHYLAXIS
     Dosage: 81 MG, DAILY (1/D)
  16. CARVEDILOL [Concomitant]
     Indication: CARDIAC DISORDER
     Dosage: 3.125 MG, 2/D
  17. TRICOR [Concomitant]
     Dosage: 145 MG, UNK
  18. AMBIEN [Concomitant]
     Indication: SLEEP DISORDER
     Dates: start: 20070101
  19. FISH OIL [Concomitant]
  20. ZOLOFT [Concomitant]
     Dosage: 100 MG, 2/D
  21. KLOR-CON [Concomitant]
     Indication: BLOOD POTASSIUM DECREASED
     Dosage: 20 MEQ, DAILY (1/D)

REACTIONS (12)
  - ANXIETY [None]
  - ATRIAL FIBRILLATION [None]
  - CORONARY ARTERY OCCLUSION [None]
  - DEPRESSION [None]
  - DYSPNOEA [None]
  - HALLUCINATION [None]
  - KIDNEY INFECTION [None]
  - PNEUMONIA [None]
  - PULMONARY OEDEMA [None]
  - SLEEP DISORDER [None]
  - URINE OUTPUT DECREASED [None]
  - URINE VISCOSITY INCREASED [None]
